FAERS Safety Report 25305178 (Version 1)
Quarter: 2025Q2

REPORT INFORMATION
  Report Type: Spontaneous
  Country: US (occurrence: None)
  Receive Date: 20250513
  Receipt Date: 20250513
  Transmission Date: 20250716
  Serious: No
  Sender: FDA-CTU
  Company Number: None

PATIENT
  Age: 40 Year
  Sex: Male
  Weight: 78 kg

DRUGS (2)
  1. TOPIRAMATE [Suspect]
     Active Substance: TOPIRAMATE
     Indication: Alcoholism
     Route: 048
     Dates: start: 20240103, end: 20240115
  2. .DELTA.8-TETRAHYDROCANNABINOL\HERBALS [Suspect]
     Active Substance: .DELTA.8-TETRAHYDROCANNABINOL\HERBALS

REACTIONS (13)
  - Paranoia [None]
  - Hallucination, visual [None]
  - Hallucination, auditory [None]
  - Psychotic disorder [None]
  - Delusion [None]
  - Substance use [None]
  - Alcohol withdrawal syndrome [None]
  - Mania [None]
  - Violence-related symptom [None]
  - Nightmare [None]
  - Flashback [None]
  - Adverse drug reaction [None]
  - Aggression [None]

NARRATIVE: CASE EVENT DATE: 20240112
